FAERS Safety Report 9115157 (Version 1)
Quarter: 2013Q1

REPORT INFORMATION
  Report Type: Spontaneous
  Country: US (occurrence: US)
  Receive Date: 20130225
  Receipt Date: 20130225
  Transmission Date: 20140127
  Serious: Yes (Other)
  Sender: FDA-Public Use
  Company Number: US-JNJFOC-20130212119

PATIENT
  Sex: 0

DRUGS (1)
  1. XARELTO [Suspect]
     Indication: MUSCULOSKELETAL DISORDER
     Route: 048

REACTIONS (2)
  - Gastrointestinal haemorrhage [Unknown]
  - Pulmonary embolism [Unknown]
